FAERS Safety Report 6601435-9 (Version None)
Quarter: 2010Q1

REPORT INFORMATION
  Report Type: 
  Country: None (occurrence: None)
  Receive Date: 20100225
  Receipt Date: 20100125
  Transmission Date: 20100710
  Serious: No
  Sender: FDA-Public Use
  Company Number: US-BAYER-201011381BCC

PATIENT
  Age: 71 Year
  Sex: Male
  Weight: 79 kg

DRUGS (8)
  1. ALEVE (CAPLET) [Suspect]
     Indication: ARTHRALGIA
     Dosage: TOTAL DAILY DOSE: 440 MG  UNIT DOSE: 220 MG
     Route: 048
     Dates: start: 20100121
  2. COUMADIN [Concomitant]
     Route: 065
  3. CARDOSIN [Concomitant]
     Route: 065
  4. WARFARIN SODIUM [Concomitant]
     Route: 065
  5. DIGOXIN [Concomitant]
     Route: 065
  6. CHLORESTERA [Concomitant]
     Route: 065
  7. UREXOFOL [Concomitant]
     Route: 065
  8. ONE A DAY VITAMINS [Concomitant]
     Route: 065

REACTIONS (4)
  - ANXIETY [None]
  - FEELING ABNORMAL [None]
  - INSOMNIA [None]
  - NIGHTMARE [None]
